FAERS Safety Report 14344230 (Version 2)
Quarter: 2018Q1

REPORT INFORMATION
  Report Type: Spontaneous
  Country: US (occurrence: US)
  Receive Date: 20180102
  Receipt Date: 20180220
  Transmission Date: 20180509
  Serious: No
  Sender: FDA-Public Use
  Company Number: US-VIFOR (INTERNATIONAL) INC.-VIT-2017-13091

PATIENT
  Age: 70 Year
  Sex: Female
  Weight: 108.96 kg

DRUGS (15)
  1. JANUVIA [Concomitant]
     Active Substance: SITAGLIPTIN PHOSPHATE
  2. DEPAKOTE [Concomitant]
     Active Substance: DIVALPROEX SODIUM
  3. NOVOLOG [Concomitant]
     Active Substance: INSULIN ASPART
  4. FISH OIL [Concomitant]
     Active Substance: FISH OIL
  5. LISINOPRIL. [Concomitant]
     Active Substance: LISINOPRIL
  6. ATENOLOL. [Concomitant]
     Active Substance: ATENOLOL
  7. TYLENOL [Concomitant]
     Active Substance: ACETAMINOPHEN
  8. FERROUS GLUCONATE [Concomitant]
     Active Substance: FERROUS GLUCONATE
  9. ALLOPURINOL. [Concomitant]
     Active Substance: ALLOPURINOL
  10. LANTUS [Concomitant]
     Active Substance: INSULIN GLARGINE
  11. DILTIAZEM HYDROCHLORIDE. [Concomitant]
     Active Substance: DILTIAZEM HYDROCHLORIDE
  12. XARELTO [Concomitant]
     Active Substance: RIVAROXABAN
  13. LEVEMIR [Concomitant]
     Active Substance: INSULIN DETEMIR
  14. CRESTOR [Concomitant]
     Active Substance: ROSUVASTATIN CALCIUM
  15. VELTASSA [Suspect]
     Active Substance: PATIROMER
     Indication: HYPERKALAEMIA
     Route: 048
     Dates: start: 20160217

REACTIONS (6)
  - Foot fracture [Recovered/Resolved]
  - Pain [Not Recovered/Not Resolved]
  - Influenza [Recovered/Resolved]
  - Off label use [Unknown]
  - Road traffic accident [Unknown]
  - Treatment noncompliance [Unknown]

NARRATIVE: CASE EVENT DATE: 201710
